FAERS Safety Report 7457734-4 (Version None)
Quarter: 2011Q2

REPORT INFORMATION
  Report Type: 
  Country: None (occurrence: None)
  Receive Date: 20110504
  Receipt Date: 20110427
  Transmission Date: 20111010
  Serious: Yes (Death)
  Sender: FDA-Public Use
  Company Number: GB-BAXTER-2011BH013291

PATIENT

DRUGS (4)
  1. S26/SMA HUMAN MILK FORTIFIER [Suspect]
     Indication: PREMATURE BABY
     Route: 048
  2. SODIUM CHLORIDE 0.9% IN PLASTIC CONTAINER [Suspect]
     Indication: PRODUCT USED FOR UNKNOWN INDICATION
     Route: 065
  3. GAVISCON [Suspect]
     Indication: PRODUCT USED FOR UNKNOWN INDICATION
     Route: 065
  4. S26/SMA HUMAN MILK FORTIFIER [Suspect]
     Indication: WEIGHT
     Route: 048

REACTIONS (1)
  - NECROTISING COLITIS [None]
